FAERS Safety Report 6787884-7 (Version None)
Quarter: 2010Q2

REPORT INFORMATION
  Report Type: 
  Country: None (occurrence: None)
  Receive Date: 20100623
  Receipt Date: 20071119
  Transmission Date: 20101027
  Serious: Yes (Other)
  Sender: FDA-Public Use
  Company Number: US-PFIZER INC-2007092725

PATIENT
  Sex: Female
  Weight: 50.8 kg

DRUGS (3)
  1. DEPO-SUBQ PROVERA 104 [Suspect]
     Indication: CONTRACEPTION
     Dosage: 1ST INJECTION
     Route: 058
     Dates: start: 20070424, end: 20070424
  2. DEPO-SUBQ PROVERA 104 [Suspect]
     Dosage: 2ND INJECTION
     Route: 058
     Dates: start: 20070720, end: 20070720
  3. DEPO-SUBQ PROVERA 104 [Suspect]
     Dosage: 3RD INJECTION
     Route: 058
     Dates: start: 20071001, end: 20071001

REACTIONS (2)
  - INJECTION SITE INDURATION [None]
  - INJECTION SITE REACTION [None]
